FAERS Safety Report 12402786 (Version 3)
Quarter: 2016Q2

REPORT INFORMATION
  Report Type: Spontaneous
  Country: IT (occurrence: IT)
  Receive Date: 20160525
  Receipt Date: 20160601
  Transmission Date: 20160815
  Serious: Yes (Hospitalization)
  Sender: FDA-Public Use
  Company Number: IT-ACCORD-040840

PATIENT
  Age: 56 Year
  Sex: Female

DRUGS (9)
  1. ENTUMIN [Suspect]
     Active Substance: CLOTHIAPINE
     Dosage: STRENGTH: 100 MG/ML
     Route: 048
     Dates: start: 20160421, end: 20160421
  2. SERENASE [Concomitant]
     Active Substance: HALOPERIDOL
     Indication: SCHIZOPHRENIA
     Dosage: STRENGTH: 2 MG/ML
     Route: 048
  3. SERETIDE [Concomitant]
     Active Substance: FLUTICASONE PROPIONATE\SALMETEROL XINAFOATE
     Dosage: STRENGTH: 25/250 MCG
     Route: 055
  4. HALDOL [Suspect]
     Active Substance: HALOPERIDOL
     Dosage: STRENGTH: 2 MG/ML
     Route: 048
     Dates: start: 20160421, end: 20160421
  5. OXYBUTYNIN EG [Suspect]
     Active Substance: OXYBUTYNIN
     Dosage: STRENGTH: 5 MG
     Route: 048
     Dates: start: 20160421, end: 20160421
  6. DELORAZEPAM [Concomitant]
     Active Substance: DELORAZEPAM
     Indication: SCHIZOPHRENIA
     Route: 048
  7. AMLODIPINE [Suspect]
     Active Substance: AMLODIPINE BESYLATE
     Route: 048
     Dates: start: 20160421, end: 20160421
  8. OMEPRAZOLE. [Suspect]
     Active Substance: OMEPRAZOLE
     Route: 048
     Dates: start: 20160421, end: 20160421
  9. AKINETON [Suspect]
     Active Substance: BIPERIDEN HYDROCHLORIDE
     Dosage: STRENGTH: 4 MG
     Route: 048
     Dates: start: 20160421, end: 20160421

REACTIONS (4)
  - Agitation [Recovered/Resolved]
  - Self-injurious ideation [Recovered/Resolved]
  - Drug abuse [Recovered/Resolved]
  - Aggression [Recovered/Resolved]

NARRATIVE: CASE EVENT DATE: 20160421
